FAERS Safety Report 8342798-6 (Version None)
Quarter: 2012Q2

REPORT INFORMATION
  Report Type: 
  Country: None (occurrence: None)
  Receive Date: 20120503
  Receipt Date: 20111116
  Transmission Date: 20120825
  Serious: Yes (Hospitalization, Other)
  Sender: FDA-Public Use
  Company Number: BE-023750

PATIENT
  Age: 75 Year
  Sex: Male

DRUGS (2)
  1. POSACONAZOLE [Concomitant]
  2. (CHLORAMBUCIL) [Suspect]
     Indication: CHRONIC LYMPHOCYTIC LEUKAEMIA
     Dosage: 10 MG/M2 ORAL
     Route: 048
     Dates: start: 20110223, end: 20110329

REACTIONS (2)
  - FEBRILE NEUTROPENIA [None]
  - MALAISE [None]
